FAERS Safety Report 5392642-4 (Version None)
Quarter: 2007Q3

REPORT INFORMATION
  Report Type: 
  Country: None (occurrence: None)
  Receive Date: 20070720
  Receipt Date: 20070713
  Transmission Date: 20080115
  Serious: Yes (Hospitalization)
  Sender: FDA-Public Use
  Company Number: CH-GENENTECH-244544

PATIENT
  Age: 79 Year
  Sex: Male

DRUGS (11)
  1. MABTHERA [Interacting]
     Indication: B-CELL LYMPHOMA
     Dosage: 1 DF, UNK
     Route: 042
     Dates: start: 20070101, end: 20070101
  2. COTRIM [Suspect]
     Indication: PROPHYLAXIS
     Dosage: 1 DF, UNK
     Route: 048
     Dates: start: 20070101, end: 20070101
  3. CYCLOPHOSPHAMIDE [Concomitant]
     Indication: B-CELL LYMPHOMA
  4. ADRIAMYCIN PFS [Concomitant]
     Indication: B-CELL LYMPHOMA
  5. VINCRISTINE [Concomitant]
     Indication: B-CELL LYMPHOMA
  6. PREDNISONE [Concomitant]
     Indication: B-CELL LYMPHOMA
  7. ACETYLSALICYLIC ACID SRT [Concomitant]
     Indication: DRUG USE FOR UNKNOWN INDICATION
     Dosage: 100 MG, QD
     Route: 048
  8. BELOC [Concomitant]
     Indication: DRUG USE FOR UNKNOWN INDICATION
     Dosage: 25 MG, QD
     Route: 048
  9. ATACAND HCT [Concomitant]
     Indication: DRUG USE FOR UNKNOWN INDICATION
     Dosage: 1 DF, QD
     Route: 048
  10. NEXIUM [Concomitant]
     Indication: DRUG USE FOR UNKNOWN INDICATION
     Dosage: 40 MG, QD
     Route: 048
  11. TORSEMIDE [Concomitant]
     Indication: DRUG USE FOR UNKNOWN INDICATION
     Dosage: 2.5 MG, QD
     Route: 048

REACTIONS (3)
  - AGRANULOCYTOSIS [None]
  - DRUG INTERACTION [None]
  - IIIRD NERVE PARALYSIS [None]
